FAERS Safety Report 24460496 (Version 1)
Quarter: 2024Q4

REPORT INFORMATION
  Report Type: Report from Study
  Country: US (occurrence: US)
  Receive Date: 20241018
  Receipt Date: 20241018
  Transmission Date: 20250115
  Serious: No
  Sender: ROCHE
  Company Number: US-ROCHE-3546895

PATIENT
  Age: 66 Year
  Sex: Female

DRUGS (5)
  1. RITUXAN [Suspect]
     Active Substance: RITUXIMAB
     Indication: Overlap syndrome
     Route: 041
  2. RITUXAN [Suspect]
     Active Substance: RITUXIMAB
     Indication: Systemic lupus erythematosus
  3. RITUXAN [Suspect]
     Active Substance: RITUXIMAB
     Indication: Polymyositis
  4. RITUXAN [Suspect]
     Active Substance: RITUXIMAB
     Indication: Sjogren^s syndrome
  5. RITUXAN [Suspect]
     Active Substance: RITUXIMAB
     Indication: Dry eye

REACTIONS (2)
  - Off label use [Unknown]
  - No adverse event [Unknown]
